FAERS Safety Report 22621642 (Version 5)
Quarter: 2024Q2

REPORT INFORMATION
  Report Type: Spontaneous
  Country: US (occurrence: US)
  Receive Date: 20230620
  Receipt Date: 20240529
  Transmission Date: 20240716
  Serious: Yes (Hospitalization)
  Sender: FDA-Public Use
  Company Number: US-PFIZER INC-US-GBT-018735

PATIENT
  Age: 47 Year
  Sex: Male
  Weight: 73 kg

DRUGS (6)
  1. OXBRYTA [Suspect]
     Active Substance: VOXELOTOR
     Indication: Sickle cell disease
     Dosage: 300 MG, 1X/DAY
     Route: 048
     Dates: start: 202207
  2. OXBRYTA [Suspect]
     Active Substance: VOXELOTOR
     Dosage: 300 MG, 1X/DAY
     Route: 048
     Dates: start: 202210
  3. OXBRYTA [Suspect]
     Active Substance: VOXELOTOR
     Dosage: 300 MG, 1X/DAY
     Route: 048
     Dates: end: 2023
  4. FOLIC ACID [Concomitant]
     Active Substance: FOLIC ACID
     Indication: Sickle cell disease
     Dosage: 1 MG PER TABLET, ONCE A DAY
  5. HYDROXYUREA [Concomitant]
     Active Substance: HYDROXYUREA
     Indication: Sickle cell disease
     Dosage: 500 MG PER CAPSULE; ONCE A DAY
  6. METOPROLOL [Concomitant]
     Active Substance: METOPROLOL
     Indication: Hypertension
     Dosage: 25 MG TWICE A DAY

REACTIONS (4)
  - Sickle cell anaemia with crisis [Unknown]
  - Off label use [Unknown]
  - Back pain [Recovered/Resolved]
  - Abdominal pain upper [Recovered/Resolved]
